FAERS Safety Report 14719280 (Version 1)
Quarter: 2018Q2

REPORT INFORMATION
  Report Type: Spontaneous
  Country: GB (occurrence: GB)
  Receive Date: 20180405
  Receipt Date: 20180405
  Transmission Date: 20180711
  Serious: Yes (Hospitalization, Other)
  Sender: FDA-Public Use
  Company Number: GB-VISTAPHARM, INC.-VER201803-000531

PATIENT
  Age: 34 Year
  Sex: Female

DRUGS (4)
  1. PREDNISOLONE. [Suspect]
     Active Substance: PREDNISOLONE
     Indication: LEUKOENCEPHALOPATHY
  2. METHYLPREDNISOLONE. [Concomitant]
     Active Substance: METHYLPREDNISOLONE
     Indication: ENCEPHALOPATHY
     Route: 042
  3. PREDNISOLONE. [Suspect]
     Active Substance: PREDNISOLONE
     Indication: ENCEPHALOPATHY
  4. MANNITOL. [Concomitant]
     Active Substance: MANNITOL
     Indication: ENCEPHALOPATHY
     Route: 042

REACTIONS (3)
  - Nervous system disorder [Unknown]
  - Condition aggravated [Unknown]
  - Steroid withdrawal syndrome [Unknown]
